FAERS Safety Report 6664008-8 (Version None)
Quarter: 2010Q2

REPORT INFORMATION
  Report Type: 
  Country: None (occurrence: None)
  Receive Date: 20100401
  Receipt Date: 20100325
  Transmission Date: 20101027
  Serious: Yes (Other)
  Sender: FDA-Public Use
  Company Number: US-SANOFI-AVENTIS-2010SA018344

PATIENT
  Sex: Male

DRUGS (1)
  1. CLOPIDOGREL BISULFATE [Suspect]
     Route: 065
     Dates: start: 20080701

REACTIONS (5)
  - KIDNEY INFECTION [None]
  - PARAPLEGIA [None]
  - PNEUMONIA [None]
  - SPINAL CORD INFECTION [None]
  - STAPHYLOCOCCAL INFECTION [None]
